FAERS Safety Report 8412400-3 (Version None)
Quarter: 2012Q2

REPORT INFORMATION
  Report Type: 
  Country: None (occurrence: None)
  Receive Date: 20120605
  Receipt Date: 20120523
  Transmission Date: 20120825
  Serious: Yes (Hospitalization)
  Sender: FDA-Public Use
  Company Number: CH-ELI_LILLY_AND_COMPANY-CH201205008408

PATIENT
  Age: 44 Year
  Sex: Female

DRUGS (4)
  1. HYPERICUM PERFORATUM [Concomitant]
     Indication: DEPRESSION
     Dosage: UNK
     Route: 048
     Dates: start: 20120301, end: 20120420
  2. CYMBALTA [Suspect]
     Indication: DEPRESSION
     Dosage: 30 MG, QD
     Dates: start: 20120420, end: 20120420
  3. VALDOXAN [Concomitant]
     Route: 048
  4. CYMBALTA [Suspect]
     Dosage: 30 MG, QD
     Dates: start: 20120422, end: 20120422

REACTIONS (6)
  - NERVOUSNESS [None]
  - PALPITATIONS [None]
  - PANIC REACTION [None]
  - DRUG INTERACTION [None]
  - MUSCLE TWITCHING [None]
  - SEROTONIN SYNDROME [None]
